FAERS Safety Report 5507654-7 (Version None)
Quarter: 2007Q4

REPORT INFORMATION
  Report Type: 
  Country: None (occurrence: None)
  Receive Date: 20071106
  Receipt Date: 20071025
  Transmission Date: 20080405
  Serious: Yes (Other)
  Sender: FDA-Public Use
  Company Number: DE-JNJFOC-20071007687

PATIENT
  Age: 17 Year

DRUGS (1)
  1. DEXTROMETHORPHAN HYDROBROMIDE [Suspect]
     Indication: INTENTIONAL DRUG MISUSE
     Dosage: UNKNOWN

REACTIONS (2)
  - ALTERED STATE OF CONSCIOUSNESS [None]
  - DRUG ABUSE [None]
